FAERS Safety Report 4803822-8 (Version None)
Quarter: 2005Q3

REPORT INFORMATION
  Report Type: 
  Country: None (occurrence: None)
  Receive Date: 20050920
  Receipt Date: 20050506
  Transmission Date: 20060218
  Serious: No
  Sender: FDA-Public Use
  Company Number: US-YAMANOUCHI-YPA20050248

PATIENT
  Sex: Female

DRUGS (3)
  1. VESICARE [Suspect]
     Indication: HYPERTONIC BLADDER
     Dosage: 5 MG QD PO
     Route: 048
     Dates: start: 20050505
  2. CATAPRES [Concomitant]
  3. DYAZIDE [Concomitant]

REACTIONS (2)
  - HYPERTENSION [None]
  - URINARY RETENTION [None]
